FAERS Safety Report 15843189 (Version 1)
Quarter: 2019Q1

REPORT INFORMATION
  Report Type: Spontaneous
  Country: US (occurrence: US)
  Receive Date: 20190118
  Receipt Date: 20190118
  Transmission Date: 20190417
  Serious: Yes (Other)
  Sender: FDA-Public Use
  Company Number: US-PFIZER INC-2017332660

PATIENT
  Age: 15 Year
  Sex: Male

DRUGS (2)
  1. GENOTROPIN [Suspect]
     Active Substance: SOMATROPIN
     Dosage: ALTERNATING 2.4MG AND 2.6MG DAILY
  2. GENOTROPIN [Suspect]
     Active Substance: SOMATROPIN
     Indication: RATHKE^S CLEFT CYST
     Dosage: 2.3 MG, UNK

REACTIONS (5)
  - Growth retardation [Unknown]
  - Headache [Unknown]
  - Product use in unapproved indication [Unknown]
  - Product dose omission [Unknown]
  - Product prescribing error [Unknown]
